FAERS Safety Report 5259780-8 (Version None)
Quarter: 2007Q1

REPORT INFORMATION
  Report Type: 
  Country: None (occurrence: None)
  Receive Date: 20070307
  Receipt Date: 20070223
  Transmission Date: 20070707
  Serious: Yes (Disabling, Other)
  Sender: FDA-Public Use
  Company Number: OSCN-PR-0702S-0106

PATIENT
  Age: 77 Year
  Sex: Male

DRUGS (5)
  1. OMNISCAN [Suspect]
     Indication: BACK PAIN
     Dosage: 30  ML, SINGLE DOSE, I.V., SINGLE DOSE, I.V.
     Route: 042
     Dates: start: 20060608, end: 20060608
  2. OMNISCAN [Suspect]
     Indication: BACK PAIN
     Dosage: 30  ML, SINGLE DOSE, I.V., SINGLE DOSE, I.V.
     Route: 042
     Dates: start: 20060829, end: 20060829
  3. SEVELAMER (RENAGEL) [Concomitant]
  4. EPOETIN ALFA [Concomitant]
  5. GLUCAGON [Concomitant]

REACTIONS (1)
  - NEPHROGENIC FIBROSING DERMOPATHY [None]
